FAERS Safety Report 8005758-0 (Version None)
Quarter: 2011Q4

REPORT INFORMATION
  Report Type: 
  Country: None (occurrence: None)
  Receive Date: 20111223
  Receipt Date: 20111220
  Transmission Date: 20120403
  Serious: Yes (Hospitalization)
  Sender: FDA-Public Use
  Company Number: US-SANOFI-AVENTIS-2011SA083803

PATIENT
  Sex: Female

DRUGS (2)
  1. OPTICLICK [Suspect]
  2. LANTUS [Suspect]
     Route: 058

REACTIONS (1)
  - FALL [None]
